FAERS Safety Report 18532613 (Version 2)
Quarter: 2020Q4

REPORT INFORMATION
  Report Type: Spontaneous
  Country: BD (occurrence: BD)
  Receive Date: 20201123
  Receipt Date: 20201228
  Transmission Date: 20210114
  Serious: Yes (Other)
  Sender: FDA-Public Use
  Company Number: BD-ROCHE-2719240

PATIENT
  Age: 45 Year

DRUGS (2)
  1. LUCENTIS [Suspect]
     Active Substance: RANIBIZUMAB
     Indication: DIABETIC RETINAL OEDEMA
     Route: 047
     Dates: start: 20201111
  2. LUCENTIS [Suspect]
     Active Substance: RANIBIZUMAB
     Indication: RETINAL DISORDER

REACTIONS (2)
  - Eye inflammation [Unknown]
  - Blindness [Unknown]

NARRATIVE: CASE EVENT DATE: 20201111
